FAERS Safety Report 16707357 (Version 2)
Quarter: 2019Q3

REPORT INFORMATION
  Report Type: Report from Study
  Country: None (occurrence: US)
  Receive Date: 20190815
  Receipt Date: 20190820
  Transmission Date: 20191004
  Serious: Yes (Hospitalization, Other)
  Sender: FDA-Public Use
  Company Number: US-BIOVITRUM-2019US2472

PATIENT
  Sex: Male

DRUGS (2)
  1. KINERET [Suspect]
     Active Substance: ANAKINRA
     Indication: HAEMOPHAGOCYTIC LYMPHOHISTIOCYTOSIS
     Route: 058
  2. KINERET [Suspect]
     Active Substance: ANAKINRA

REACTIONS (4)
  - Headache [Unknown]
  - Off label use [Unknown]
  - Vomiting [Unknown]
  - Cerebellar tumour [Unknown]
